FAERS Safety Report 8141334-7 (Version None)
Quarter: 2012Q1

REPORT INFORMATION
  Report Type: 
  Country: None (occurrence: None)
  Receive Date: 20120216
  Receipt Date: 20120131
  Transmission Date: 20120608
  Serious: Yes (Other)
  Sender: FDA-Public Use
  Company Number: CA-ROCHE-1036131

PATIENT
  Sex: Female
  Weight: 59.02 kg

DRUGS (15)
  1. PREDNISONE [Concomitant]
  2. MULTIVITAMIN [Concomitant]
  3. ACTEMRA [Suspect]
     Indication: RHEUMATOID ARTHRITIS
     Route: 042
     Dates: start: 20101027, end: 20111123
  4. IRON [Concomitant]
  5. SYNTHROID [Concomitant]
  6. EPREX [Concomitant]
     Route: 058
  7. COSOPT [Concomitant]
     Route: 047
  8. CALCIUM [Concomitant]
  9. FOSAMAX [Concomitant]
     Indication: HYPERTENSION
  10. NORVASC [Concomitant]
     Indication: HYPERTENSION
  11. METHOTREXATE [Concomitant]
  12. ENBREL [Concomitant]
  13. VASOTEC [Concomitant]
     Indication: HYPERTENSION
  14. LUMIGAN [Concomitant]
     Route: 047
  15. VITAMIN D [Concomitant]

REACTIONS (1)
  - CARDIAC DISORDER [None]
